FAERS Safety Report 10982935 (Version 1)
Quarter: 2015Q2

REPORT INFORMATION
  Report Type: Spontaneous
  Country: US (occurrence: None)
  Receive Date: 20150402
  Receipt Date: 20150402
  Transmission Date: 20150821
  Serious: No
  Sender: FDA-Public Use
  Company Number: None

PATIENT
  Age: 33 Year
  Sex: Female
  Weight: 77.11 kg

DRUGS (5)
  1. LYRICA [Suspect]
     Active Substance: PREGABALIN
     Indication: ENDOMETRIOSIS
     Dosage: 2, TWICE DAILY, TAKEN BY MOUTH
     Route: 048
     Dates: start: 20150226, end: 20150401
  2. LYRICA [Suspect]
     Active Substance: PREGABALIN
     Indication: ANALGESIC THERAPY
     Dosage: 2, TWICE DAILY, TAKEN BY MOUTH
     Route: 048
     Dates: start: 20150226, end: 20150401
  3. TRAMADOL [Concomitant]
     Active Substance: TRAMADOL
  4. CYCLOBENZADINE [Concomitant]
  5. INDOMETHECIN [Concomitant]

REACTIONS (1)
  - Dyslexia [None]

NARRATIVE: CASE EVENT DATE: 20150401
